FAERS Safety Report 15772157 (Version 1)
Quarter: 2018Q4

REPORT INFORMATION
  Report Type: Spontaneous
  Country: US (occurrence: US)
  Receive Date: 20181228
  Receipt Date: 20181228
  Transmission Date: 20190205
  Serious: Yes (Hospitalization)
  Sender: FDA-Public Use
  Company Number: US-PFM-2018-14863

PATIENT
  Age: 9 Month
  Sex: Female
  Weight: 5.96 kg

DRUGS (1)
  1. HEMANGEOL [Suspect]
     Active Substance: PROPRANOLOL HYDROCHLORIDE
     Indication: INFANTILE HAEMANGIOMA
     Dosage: 2.2 ML, BID (2/DAY)
     Route: 048
     Dates: start: 201807

REACTIONS (1)
  - Rhinovirus infection [Recovered/Resolved]
